FAERS Safety Report 7407067-7 (Version None)
Quarter: 2011Q2

REPORT INFORMATION
  Report Type: 
  Country: None (occurrence: None)
  Receive Date: 20110411
  Receipt Date: 20110404
  Transmission Date: 20111010
  Serious: Yes (Hospitalization, Congenital Anomaly)
  Sender: FDA-Public Use
  Company Number: NL-MEDIMMUNE-MEDI-0012469

PATIENT
  Sex: Male
  Weight: 7.8 kg

DRUGS (4)
  1. SYNAGIS [Suspect]
     Route: 030
     Dates: start: 20110404
  2. SYNAGIS [Suspect]
     Route: 030
     Dates: start: 20110207, end: 20110404
  3. SYNAGIS [Suspect]
     Route: 030
     Dates: start: 20100921, end: 20110110
  4. SYNAGIS [Suspect]
     Route: 030
     Dates: start: 20110307, end: 20110307

REACTIONS (12)
  - RHINOVIRUS INFECTION [None]
  - RHINITIS [None]
  - OXYGEN SATURATION DECREASED [None]
  - PYREXIA [None]
  - RESPIRATORY TRACT INFECTION [None]
  - VOMITING [None]
  - COUGH [None]
  - DIARRHOEA [None]
  - DYSPNOEA [None]
  - INFANTILE SPITTING UP [None]
  - NASOPHARYNGITIS [None]
  - GASTROENTERITIS [None]
